FAERS Safety Report 16893379 (Version 2)
Quarter: 2019Q4

REPORT INFORMATION
  Report Type: Spontaneous
  Country: DK (occurrence: DK)
  Receive Date: 20191008
  Receipt Date: 20191206
  Transmission Date: 20200122
  Serious: Yes (Hospitalization)
  Sender: FDA-Public Use
  Company Number: DK-EMD SERONO-E2B_90071209

PATIENT
  Age: 74 Year
  Sex: Female

DRUGS (7)
  1. FUROSEMID                          /00032601/ [Concomitant]
     Active Substance: FUROSEMIDE
     Indication: DIURETIC THERAPY
     Route: 048
     Dates: start: 20190916
  2. METFORMIN [Suspect]
     Active Substance: METFORMIN HYDROCHLORIDE
     Indication: TYPE 2 DIABETES MELLITUS
     Dosage: IT HAS NOT BEEN STATED WHETHER METFORMIN WAS PAUSED PRIOR TO CONTRAST ADMINISTRATION
     Route: 048
     Dates: start: 20150407, end: 20190904
  3. SPIRIX [Suspect]
     Active Substance: SPIRONOLACTONE
     Indication: DIURETIC THERAPY
     Route: 048
     Dates: start: 20190730, end: 20190904
  4. KALIUMCHLORID [Concomitant]
     Active Substance: POTASSIUM CHLORIDE
     Indication: MINERAL SUPPLEMENTATION
     Route: 048
     Dates: start: 20190710, end: 201909
  5. IOMERON [Suspect]
     Active Substance: IOMEPROL
     Indication: ANGIOCARDIOGRAM
     Route: 042
     Dates: start: 20190801
  6. SOLIFENACIN [Concomitant]
     Active Substance: SOLIFENACIN
     Indication: URINARY INCONTINENCE
     Route: 048
  7. CARVEDILOL. [Concomitant]
     Active Substance: CARVEDILOL
     Indication: CARDIAC DISORDER
     Route: 048
     Dates: start: 20190729, end: 201909

REACTIONS (1)
  - Renal failure [Recovering/Resolving]

NARRATIVE: CASE EVENT DATE: 2019
